FAERS Safety Report 8046668-2 (Version None)
Quarter: 2012Q1

REPORT INFORMATION
  Report Type: 
  Country: None (occurrence: None)
  Receive Date: 20120115
  Receipt Date: 20111220
  Transmission Date: 20120608
  Serious: No
  Sender: FDA-Public Use
  Company Number: US-ROXANE LABORATORIES, INC.-2011-RO-01845RO

PATIENT
  Sex: Female

DRUGS (3)
  1. ATENOLOL [Concomitant]
  2. EXEMESTANE [Suspect]
     Indication: BREAST CANCER
     Dosage: 25 MG
     Route: 048
  3. ANASTROZOLE [Suspect]
     Indication: BREAST CANCER
     Dosage: 1 MG
     Route: 048

REACTIONS (4)
  - MUSCULAR WEAKNESS [None]
  - HOT FLUSH [None]
  - DIZZINESS [None]
  - ARTHRALGIA [None]
